FAERS Safety Report 12761003 (Version 2)
Quarter: 2016Q4

REPORT INFORMATION
  Report Type: Report from Study
  Country: JP (occurrence: JP)
  Receive Date: 20160919
  Receipt Date: 20161123
  Transmission Date: 20170207
  Serious: Yes (Disabling)
  Sender: FDA-Public Use
  Company Number: JP-ROCHE-1612946

PATIENT
  Age: 14 Year
  Sex: Male

DRUGS (14)
  1. CALONAL [Concomitant]
     Active Substance: ACETAMINOPHEN
     Indication: PREMEDICATION
     Route: 048
     Dates: start: 20150312, end: 20160404
  2. BAKTAR [Concomitant]
     Active Substance: SULFAMETHOXAZOLE\TRIMETHOPRIM
     Indication: PROPHYLAXIS
     Dosage: 1.0 TABLET
     Route: 048
     Dates: start: 20150312, end: 20150827
  3. NEORAL [Concomitant]
     Active Substance: CYCLOSPORINE
     Indication: NEPHROTIC SYNDROME
     Route: 048
     Dates: start: 20101201, end: 20130801
  4. PREDONINE [Concomitant]
     Active Substance: PREDNISOLONE\PREDNISOLONE ACETATE\PREDNISOLONE SODIUM SUCCINATE
     Indication: NEPHROTIC SYNDROME
     Dosage: 0-60 MG
     Route: 048
     Dates: start: 20100101
  5. MICARDIS [Concomitant]
     Active Substance: TELMISARTAN
     Route: 048
     Dates: start: 20150312, end: 20150827
  6. RITUXIMAB [Suspect]
     Active Substance: RITUXIMAB
     Indication: NEPHROTIC SYNDROME
     Dosage: SINGLE DOSE
     Route: 042
     Dates: start: 20150312, end: 20150312
  7. RITUXIMAB [Suspect]
     Active Substance: RITUXIMAB
     Dosage: RECEIVED FOURTH SUBSEQUENT DOSE, AT THE INITIAL INFUSION RATE OF 25 MG/H AND THE MAXIMUM RATE OF 150
     Route: 042
     Dates: start: 20160404, end: 20160404
  8. MYCOPHENOLATE MOFETIL. [Suspect]
     Active Substance: MYCOPHENOLATE MOFETIL
     Indication: NEPHROTIC SYNDROME
     Route: 048
     Dates: start: 20130801, end: 20150928
  9. MYCOPHENOLATE MOFETIL. [Suspect]
     Active Substance: MYCOPHENOLATE MOFETIL
     Route: 048
     Dates: start: 20150312, end: 20150827
  10. POLARAMINE [Concomitant]
     Active Substance: DEXCHLORPHENIRAMINE MALEATE
     Indication: PREMEDICATION
     Route: 048
     Dates: start: 20150312, end: 20160404
  11. GASTER [Concomitant]
     Active Substance: FAMOTIDINE
     Indication: PROPHYLAXIS
     Route: 048
     Dates: start: 20150312, end: 20150827
  12. RITUXIMAB [Suspect]
     Active Substance: RITUXIMAB
     Dosage: RECEIVED A TOTAL OF 3 SUBSEQUENT DOSES
     Route: 042
     Dates: start: 20150918, end: 201604
  13. MYCOPHENOLATE MOFETIL. [Suspect]
     Active Substance: MYCOPHENOLATE MOFETIL
     Route: 048
  14. SOLU-CORTEF [Concomitant]
     Active Substance: HYDROCORTISONE SODIUM SUCCINATE
     Indication: PREMEDICATION
     Route: 042
     Dates: start: 20150312, end: 20160404

REACTIONS (2)
  - Cytomegalovirus enteritis [Not Recovered/Not Resolved]
  - Rash [Recovering/Resolving]

NARRATIVE: CASE EVENT DATE: 20150615
